FAERS Safety Report 7395827-0 (Version None)
Quarter: 2011Q2

REPORT INFORMATION
  Report Type: 
  Country: None (occurrence: None)
  Receive Date: 20110405
  Receipt Date: 20110325
  Transmission Date: 20111010
  Serious: Yes (Other)
  Sender: FDA-Public Use
  Company Number: US-BAYER-2011-026621

PATIENT
  Sex: Female

DRUGS (4)
  1. NASONEX [Concomitant]
  2. NEXIUM [Concomitant]
  3. AVELOX [Suspect]
     Indication: SINUSITIS
     Dosage: UNK
     Route: 048
     Dates: start: 20101201, end: 20101201
  4. PATANOL [Concomitant]

REACTIONS (3)
  - RASH [None]
  - HYPERSENSITIVITY [None]
  - THROAT TIGHTNESS [None]
